FAERS Safety Report 22103710 (Version 1)
Quarter: 2023Q1

REPORT INFORMATION
  Report Type: Spontaneous
  Country: US (occurrence: US)
  Receive Date: 20230316
  Receipt Date: 20230316
  Transmission Date: 20230417
  Serious: Yes (Hospitalization, Other)
  Sender: FDA-Public Use
  Company Number: US-002147023-NVSC2023US058524

PATIENT
  Age: 79 Year
  Sex: Male

DRUGS (45)
  1. METHOTREXATE [Suspect]
     Active Substance: METHOTREXATE
     Indication: Plasmablastic lymphoma
     Dosage: 12 MG (C1)
     Route: 037
  2. METHOTREXATE [Suspect]
     Active Substance: METHOTREXATE
     Dosage: 12 MG (C2)
     Route: 037
  3. METHOTREXATE [Suspect]
     Active Substance: METHOTREXATE
     Dosage: 12 MG (C3)
     Route: 037
  4. METHOTREXATE [Suspect]
     Active Substance: METHOTREXATE
     Dosage: 12 MG (C4)
     Route: 037
  5. METHOTREXATE [Suspect]
     Active Substance: METHOTREXATE
     Dosage: 12 MG (C5)
     Route: 037
  6. METHOTREXATE [Suspect]
     Active Substance: METHOTREXATE
     Dosage: 12 MG (C6)
     Route: 037
  7. OXALIPLATIN [Suspect]
     Active Substance: OXALIPLATIN
     Indication: Plasmablastic lymphoma
     Dosage: 180 MG D1 (CL OF R-DHAX)
     Route: 065
  8. RITUXIMAB [Suspect]
     Active Substance: RITUXIMAB
     Indication: Plasmablastic lymphoma
     Dosage: 375 MG/M2 (C1)(CYCLIC)
     Route: 065
  9. RITUXIMAB [Suspect]
     Active Substance: RITUXIMAB
     Dosage: 375 MG/M2 (C2)(CYCLIC)
     Route: 065
  10. RITUXIMAB [Suspect]
     Active Substance: RITUXIMAB
     Dosage: 375 MG/M2 (C3)(CYCLIC)
     Route: 065
  11. RITUXIMAB [Suspect]
     Active Substance: RITUXIMAB
     Dosage: 375 MG/M2 (C4)(CYCLIC)
     Route: 065
  12. RITUXIMAB [Suspect]
     Active Substance: RITUXIMAB
     Dosage: 375 MG/M2 (C5)(CYCLIC)
     Route: 065
  13. RITUXIMAB [Suspect]
     Active Substance: RITUXIMAB
     Dosage: 375 MG/M2 (C6)(CYCLIC)
     Route: 065
  14. CYCLOPHOSPHAMIDE [Suspect]
     Active Substance: CYCLOPHOSPHAMIDE
     Indication: Plasmablastic lymphoma
     Dosage: 600 MG/M2,(C1)
     Route: 065
  15. CYCLOPHOSPHAMIDE [Suspect]
     Active Substance: CYCLOPHOSPHAMIDE
     Dosage: 600 MG/M2,(C2)
     Route: 065
  16. CYCLOPHOSPHAMIDE [Suspect]
     Active Substance: CYCLOPHOSPHAMIDE
     Dosage: 600 MG/M2,(C3)
     Route: 065
  17. CYCLOPHOSPHAMIDE [Suspect]
     Active Substance: CYCLOPHOSPHAMIDE
     Dosage: 600 MG/M2,(C4)
     Route: 065
  18. CYCLOPHOSPHAMIDE [Suspect]
     Active Substance: CYCLOPHOSPHAMIDE
     Dosage: 375 MG/M2,(C5)
     Route: 065
  19. CYCLOPHOSPHAMIDE [Suspect]
     Active Substance: CYCLOPHOSPHAMIDE
     Dosage: 375 MG/M2,(C6)
     Route: 065
  20. DARATUMUMAB [Suspect]
     Active Substance: DARATUMUMAB
     Indication: Plasmablastic lymphoma
     Dosage: 16 MG/KG, CYCLIC (ON D1 AND D5)
     Route: 065
  21. DARATUMUMAB [Suspect]
     Active Substance: DARATUMUMAB
     Dosage: 16 MG/KG ON D1 AND D5(C2)(CYCLIC)
     Route: 065
  22. DARATUMUMAB [Suspect]
     Active Substance: DARATUMUMAB
     Dosage: 16 MG/KG ON D1 AND D5 (C3) (CYCLIC)
     Route: 065
  23. DARATUMUMAB [Suspect]
     Active Substance: DARATUMUMAB
     Dosage: 16 MG/KG ON D1 AND D5 (C4)(CYCLIC)
     Route: 065
  24. DARATUMUMAB [Suspect]
     Active Substance: DARATUMUMAB
     Dosage: 16 MG/KG ON D1 AND D5 (C5)(CYCLIC)
     Route: 065
  25. DARATUMUMAB [Suspect]
     Active Substance: DARATUMUMAB
     Dosage: 16 MG/KG ON D1 AND D5 (C6)(CYCLIC)
     Route: 065
  26. DARATUMUMAB [Suspect]
     Active Substance: DARATUMUMAB
     Dosage: 16 MG/KG ON D1 AND D5 (C6)(CYCLIC)
     Route: 065
  27. VINCRISTINE [Suspect]
     Active Substance: VINCRISTINE
     Indication: Plasmablastic lymphoma
     Dosage: 0.4 MG/M2 (C1)
     Route: 065
  28. VINCRISTINE [Suspect]
     Active Substance: VINCRISTINE
     Dosage: 0.8 MG/M2 (C 2)
     Route: 065
  29. VINCRISTINE [Suspect]
     Active Substance: VINCRISTINE
     Dosage: 0.8 MG/M2 (C3)
     Route: 065
  30. VINCRISTINE [Suspect]
     Active Substance: VINCRISTINE
     Dosage: 0.8 MG/M2 (C4)
     Route: 065
  31. VINCRISTINE [Suspect]
     Active Substance: VINCRISTINE
     Dosage: 0.4 MG/M2 (C5)
     Route: 065
  32. VINCRISTINE [Suspect]
     Active Substance: VINCRISTINE
     Dosage: 0.4 MG/M2 (C 6)
     Route: 065
  33. DOXORUBICIN [Suspect]
     Active Substance: DOXORUBICIN
     Indication: Plasmablastic lymphoma
     Dosage: 8 MG/M2 (C1)
     Route: 065
  34. DOXORUBICIN [Suspect]
     Active Substance: DOXORUBICIN
     Dosage: 15 MG/M2 (C2)
     Route: 065
  35. DOXORUBICIN [Suspect]
     Active Substance: DOXORUBICIN
     Dosage: 15 MG/M2 (C3)
     Route: 065
  36. DOXORUBICIN [Suspect]
     Active Substance: DOXORUBICIN
     Dosage: 15 MG/M2 (C4)
     Route: 065
  37. DOXORUBICIN [Suspect]
     Active Substance: DOXORUBICIN
     Dosage: 10 MG/M2 (C5)
     Route: 065
  38. DOXORUBICIN [Suspect]
     Active Substance: DOXORUBICIN
     Dosage: 10 MG/M2 (C6)
     Route: 065
  39. ETOPOSIDE [Suspect]
     Active Substance: ETOPOSIDE
     Indication: Plasmablastic lymphoma
     Dosage: 40 MG/M2 (C1)
     Route: 065
  40. ETOPOSIDE [Suspect]
     Active Substance: ETOPOSIDE
     Dosage: 75 MG/M2 (C2)
     Route: 065
  41. ETOPOSIDE [Suspect]
     Active Substance: ETOPOSIDE
     Dosage: 75 MG/M2 (C3)
     Route: 065
  42. ETOPOSIDE [Suspect]
     Active Substance: ETOPOSIDE
     Dosage: 75 MG/M2 (C4)
     Route: 065
  43. ETOPOSIDE [Suspect]
     Active Substance: ETOPOSIDE
     Dosage: 50 MG/M2 (C5)
     Route: 065
  44. ETOPOSIDE [Suspect]
     Active Substance: ETOPOSIDE
     Dosage: 50 MG/M2 (C6)
     Route: 065
  45. CYTARABINE [Suspect]
     Active Substance: CYTARABINE
     Indication: Plasmablastic lymphoma
     Dosage: 1130 MG D2 AND D3 (CL OF R-DHAX)
     Route: 065

REACTIONS (2)
  - Febrile neutropenia [Unknown]
  - Product use in unapproved indication [Unknown]
